FAERS Safety Report 11868947 (Version 3)
Quarter: 2016Q2

REPORT INFORMATION
  Report Type: Spontaneous
  Country: JP (occurrence: JP)
  Receive Date: 20151225
  Receipt Date: 20160425
  Transmission Date: 20160815
  Serious: Yes (Death, Other)
  Sender: FDA-Public Use
  Company Number: JP-UCBSA-2015029775

PATIENT
  Age: 89 Year
  Sex: Male

DRUGS (13)
  1. NEUPRO [Suspect]
     Active Substance: ROTIGOTINE
     Indication: PROGRESSIVE SUPRANUCLEAR PALSY
     Dosage: STRENGTH: 2.25 MG, DAILY DOSE 2MG/24H
     Route: 062
     Dates: start: 201501, end: 20150915
  2. MENESIT [Suspect]
     Active Substance: CARBIDOPA\LEVODOPA
     Dosage: 300 MG DAILY DOSE
     Route: 051
     Dates: start: 20150915, end: 20150919
  3. PROTECADIN [Concomitant]
     Active Substance: LAFUTIDINE
     Indication: PRODUCT USED FOR UNKNOWN INDICATION
  4. MENESIT [Suspect]
     Active Substance: CARBIDOPA\LEVODOPA
     Indication: PRODUCT USED FOR UNKNOWN INDICATION
     Dosage: DAILY DOSE: 400 MG
     Route: 051
     Dates: start: 201501, end: 20150914
  5. MENESIT [Suspect]
     Active Substance: CARBIDOPA\LEVODOPA
     Dosage: 200 MG DAILY DOSE
     Route: 051
     Dates: start: 20150920, end: 20150924
  6. URSODEOXYCHOLIC ACID [Concomitant]
     Active Substance: URSODIOL
     Indication: PRODUCT USED FOR UNKNOWN INDICATION
     Dosage: UNK
     Dates: start: 20150904, end: 20151206
  7. NEUPRO [Suspect]
     Active Substance: ROTIGOTINE
     Indication: OFF LABEL USE
  8. MENESIT [Suspect]
     Active Substance: CARBIDOPA\LEVODOPA
     Dosage: 100 MG DAILY DOSE
     Route: 051
     Dates: start: 20150925, end: 20150929
  9. NORVASC [Concomitant]
     Active Substance: AMLODIPINE BESYLATE
     Indication: PRODUCT USED FOR UNKNOWN INDICATION
     Dosage: UNK
     Dates: end: 20150514
  10. TAKEPRON [Concomitant]
     Active Substance: LANSOPRAZOLE
     Indication: PRODUCT USED FOR UNKNOWN INDICATION
     Dosage: UNK
     Dates: end: 20150902
  11. BIFIDOBACTERIUM BIFIDUM [Concomitant]
     Indication: PRODUCT USED FOR UNKNOWN INDICATION
     Dosage: UNK
     Dates: start: 20150513, end: 20151206
  12. CLEANAL [Concomitant]
     Active Substance: FUDOSTEINE
     Indication: PRODUCT USED FOR UNKNOWN INDICATION
     Dosage: UNK
     Dates: start: 20150409, end: 20151206
  13. ACECOL [Concomitant]
     Active Substance: TEMOCAPRIL HYDROCHLORIDE
     Indication: PRODUCT USED FOR UNKNOWN INDICATION
     Dosage: UNK
     Dates: start: 20150409, end: 20150910

REACTIONS (4)
  - Anaemia [Not Recovered/Not Resolved]
  - Platelet count decreased [Recovered/Resolved]
  - Pneumonia [Fatal]
  - Off label use [Unknown]

NARRATIVE: CASE EVENT DATE: 2015
